FAERS Safety Report 7947290-6 (Version None)
Quarter: 2011Q4

REPORT INFORMATION
  Report Type: 
  Country: None (occurrence: None)
  Receive Date: 20111130
  Receipt Date: 20111118
  Transmission Date: 20120403
  Serious: Yes (Hospitalization)
  Sender: FDA-Public Use
  Company Number: US-BIOGENIDEC-2011BI040106

PATIENT
  Age: 50 Year
  Sex: Female

DRUGS (2)
  1. TYSABRI [Suspect]
     Indication: MULTIPLE SCLEROSIS
     Route: 042
     Dates: start: 20111017, end: 20111017
  2. TYSABRI [Suspect]
     Route: 042
     Dates: start: 20080904, end: 20090427

REACTIONS (4)
  - HYPERSENSITIVITY [None]
  - PYREXIA [None]
  - TACHYCARDIA [None]
  - MUSCLE SPASMS [None]
